FAERS Safety Report 5023723-2 (Version None)
Quarter: 2006Q2

REPORT INFORMATION
  Report Type: 
  Country: None (occurrence: None)
  Receive Date: 20060612
  Receipt Date: 20060530
  Transmission Date: 20061013
  Serious: Yes (Disabling)
  Sender: FDA-Public Use
  Company Number: 2006GB00938

PATIENT
  Age: 55 Year
  Sex: Female
  Weight: 66 kg

DRUGS (9)
  1. CRESTOR [Suspect]
     Indication: HYPERCHOLESTEROLAEMIA
     Route: 048
     Dates: start: 20060509, end: 20060517
  2. CANDESARTAN CILEXETIL [Concomitant]
     Route: 065
  3. BENDROFLUAZIDE [Concomitant]
     Route: 065
  4. BECLOMETHASONE DIPROPIONATE [Concomitant]
     Route: 065
  5. SALBUTAMOL [Concomitant]
     Route: 065
  6. SALMETEROL [Concomitant]
     Route: 065
  7. WARFARIN [Concomitant]
     Route: 065
  8. BEZALIP [Concomitant]
     Route: 065
  9. FLUOXETINE [Concomitant]
     Route: 065

REACTIONS (7)
  - CEREBELLAR ATAXIA [None]
  - CEREBELLAR SYNDROME [None]
  - INTENTION TREMOR [None]
  - MALAISE [None]
  - MYALGIA [None]
  - NAUSEA [None]
  - NYSTAGMUS [None]
